FAERS Safety Report 21363204 (Version 1)
Quarter: 2022Q3

REPORT INFORMATION
  Report Type: Spontaneous
  Country: US (occurrence: US)
  Receive Date: 20220922
  Receipt Date: 20220922
  Transmission Date: 20221027
  Serious: Yes (Hospitalization, Other)
  Sender: FDA-Public Use
  Company Number: US-CADILA HEALTHCARE LIMITED-US-ZYDUS-082711

PATIENT

DRUGS (6)
  1. BUPROPION [Suspect]
     Active Substance: BUPROPION
     Indication: Depression
     Dosage: 150 MILLIGRAM, BID
     Route: 065
  2. FLUOXETINE [Suspect]
     Active Substance: FLUOXETINE HYDROCHLORIDE
     Indication: Depression
     Dosage: 40 MILLIGRAM, QD
     Route: 065
  3. METOCLOPRAMIDE [Suspect]
     Active Substance: METOCLOPRAMIDE
     Indication: Gastrooesophageal reflux disease
     Dosage: 5 MILLIGRAM FOUR TIMES A DAY
     Route: 065
  4. HERBALS\UNCARIA TOMENTOSA WHOLE [Suspect]
     Active Substance: HERBALS\UNCARIA TOMENTOSA WHOLE
     Indication: Weight decreased
     Dosage: UNK
     Route: 065
  5. DEXBROMPHENIRAMINE [Concomitant]
     Active Substance: DEXBROMPHENIRAMINE
     Indication: Product used for unknown indication
     Dosage: UNK
     Route: 065
  6. PHENYLEPHRINE [Concomitant]
     Active Substance: PHENYLEPHRINE HYDROCHLORIDE
     Indication: Product used for unknown indication
     Dosage: UNK
     Route: 065

REACTIONS (1)
  - Serotonin syndrome [Recovering/Resolving]
